FAERS Safety Report 5364633-0 (Version None)
Quarter: 2007Q2

REPORT INFORMATION
  Report Type: 
  Country: None (occurrence: None)
  Receive Date: 20070619
  Receipt Date: 20070619
  Transmission Date: 20071010
  Serious: Yes (Other)
  Sender: FDA-Public Use
  Company Number: None

PATIENT
  Age: 19 Day
  Sex: Female

DRUGS (2)
  1. TPN [Suspect]
     Indication: PARENTERAL NUTRITION
     Dosage: DAILY IV DRIP
     Route: 041
     Dates: start: 20070203, end: 20070204
  2. INSULIN [Suspect]

REACTIONS (5)
  - BLOOD GLUCOSE DECREASED [None]
  - BLOOD INSULIN INCREASED [None]
  - DRUG DISPENSING ERROR [None]
  - MEDICATION ERROR [None]
  - WRONG DRUG ADMINISTERED [None]
